FAERS Safety Report 6478334-9 (Version None)
Quarter: 2009Q4

REPORT INFORMATION
  Report Type: 
  Country: None (occurrence: None)
  Receive Date: 20091207
  Receipt Date: 20091130
  Transmission Date: 20100525
  Serious: Yes (Other)
  Sender: FDA-Public Use
  Company Number: US-BAYER-200917218BCC

PATIENT
  Age: 49 Year
  Sex: Male
  Weight: 91 kg

DRUGS (1)
  1. ALKA SELTZER PLUS EFFERVESCENT FLU [Suspect]
     Indication: OROPHARYNGEAL PAIN
     Dosage: TOTAL DAILY DOSE: 2 DF  UNIT DOSE: 1 DF
     Route: 048
     Dates: start: 20091130

REACTIONS (4)
  - BLOOD URINE PRESENT [None]
  - CHROMATURIA [None]
  - DYSURIA [None]
  - URINE ANALYSIS ABNORMAL [None]
